FAERS Safety Report 5924001-7 (Version None)
Quarter: 2008Q4

REPORT INFORMATION
  Report Type: 
  Country: None (occurrence: None)
  Receive Date: 20081020
  Receipt Date: 20081009
  Transmission Date: 20090506
  Serious: Yes (Disabling, Other)
  Sender: FDA-Public Use
  Company Number: PHBS2008DE05952

PATIENT
  Age: 15 Year
  Sex: Female

DRUGS (8)
  1. CYCLOSPORINE [Suspect]
     Indication: RENAL TRANSPLANT
  2. TACROLIMUS [Suspect]
     Indication: RENAL TRANSPLANT
  3. PREDNISOLONE [Suspect]
     Indication: RENAL TRANSPLANT
     Dosage: 5 MG/DAY
  4. AZATHIOPRINE [Suspect]
     Indication: RENAL TRANSPLANT
  5. MYCOPHENOLATE MOFETIL [Suspect]
     Indication: RENAL TRANSPLANT
     Dosage: 1200 MG/M2/DAY
  6. ASPIRIN [Concomitant]
  7. PENTOXIFYLLINE [Concomitant]
  8. EPOGEN [Concomitant]

REACTIONS (12)
  - APHASIA [None]
  - BACTERIAL INFECTION [None]
  - BLINDNESS [None]
  - CEREBRAL ARTERY THROMBOSIS [None]
  - CEREBRAL INFARCTION [None]
  - CEREBRAL ISCHAEMIA [None]
  - ENTEROCOCCAL SEPSIS [None]
  - ESCHERICHIA INFECTION [None]
  - HEMIPARESIS [None]
  - ILEUS [None]
  - NEUROTOXICITY [None]
  - TRANSIENT ISCHAEMIC ATTACK [None]
